FAERS Safety Report 23866927 (Version 1)
Quarter: 2024Q2

REPORT INFORMATION
  Report Type: Other
  Country: IT (occurrence: IT)
  Receive Date: 20240517
  Receipt Date: 20240517
  Transmission Date: 20240716
  Serious: Yes (Hospitalization, Other)
  Sender: FDA-Public Use
  Company Number: None

PATIENT
  Age: 62 Year
  Sex: Female

DRUGS (4)
  1. QUETIAPINE [Suspect]
     Active Substance: QUETIAPINE
     Indication: Intentional self-injury
     Dosage: TAKING 30 TABLETS OF 50 MG FOR SELF-HARMING PURPOSES
     Route: 048
     Dates: start: 20240503
  2. CIPRALEX [Suspect]
     Active Substance: ESCITALOPRAM OXALATE
     Indication: Intentional self-injury
     Dosage: TAKING 28 TABLETS OF 20 MG FOR SELF-HARMING PURPOSES
     Route: 048
     Dates: start: 20240503
  3. ALPRAZOLAM [Suspect]
     Active Substance: ALPRAZOLAM
     Indication: Intentional self-injury
     Dosage: TAKING 2 BOTTLES OF DROPS FOR SELF-HARMING PURPOSES
     Route: 048
     Dates: start: 20240503
  4. TRIFLUOPERAZINE HYDROCHLORIDE [Suspect]
     Active Substance: TRIFLUOPERAZINE HYDROCHLORIDE
     Indication: Intentional self-injury
     Dosage: TAKING 60 TABLETS OF UNSPECIFIED DOSAGE FOR SELF-HARMING PURPOSES
     Route: 048
     Dates: start: 20240503

REACTIONS (5)
  - Coma [Recovered/Resolved]
  - Loss of consciousness [Recovered/Resolved]
  - Intentional self-injury [Unknown]
  - Drug abuse [Unknown]
  - Sinus tachycardia [Recovered/Resolved]

NARRATIVE: CASE EVENT DATE: 20240503
